FAERS Safety Report 6299011-3 (Version None)
Quarter: 2009Q3

REPORT INFORMATION
  Report Type: 
  Country: None (occurrence: None)
  Receive Date: 20090806
  Receipt Date: 20090728
  Transmission Date: 20100115
  Serious: Yes (Other)
  Sender: FDA-Public Use
  Company Number: PHHY2009BR31858

PATIENT
  Age: 7 Year
  Sex: Female

DRUGS (2)
  1. TEGRETOL [Suspect]
     Dosage: UNK
     Dates: end: 20080101
  2. TRILEPTAL [Suspect]
     Dosage: UNK
     Dates: start: 20080101

REACTIONS (1)
  - EPILEPSY [None]
